FAERS Safety Report 9646231 (Version 1)
Quarter: 2013Q4

REPORT INFORMATION
  Report Type: Report from Study
  Country: US (occurrence: US)
  Receive Date: 20131025
  Receipt Date: 20131025
  Transmission Date: 20140711
  Serious: Yes (Other)
  Sender: FDA-Public Use
  Company Number: US-US-EMD SERONO, INC.-7244861

PATIENT
  Sex: Female
  Weight: 130 kg

DRUGS (1)
  1. REBIF [Suspect]
     Indication: MULTIPLE SCLEROSIS
     Route: 058
     Dates: start: 20060307

REACTIONS (5)
  - Body mass index increased [Recovering/Resolving]
  - Liver disorder [Not Recovered/Not Resolved]
  - Asthma exercise induced [Unknown]
  - Stress fracture [Not Recovered/Not Resolved]
  - Hypothyroidism [Recovering/Resolving]
